FAERS Safety Report 23835640 (Version 3)
Quarter: 2024Q2

REPORT INFORMATION
  Report Type: Spontaneous
  Country: US (occurrence: US)
  Receive Date: 20240509
  Receipt Date: 20240517
  Transmission Date: 20240716
  Serious: Yes (Other)
  Sender: FDA-Public Use
  Company Number: US-AMGEN-USASP2024092269

PATIENT

DRUGS (5)
  1. OTEZLA [Suspect]
     Active Substance: APREMILAST
     Indication: Product used for unknown indication
     Dosage: UNK
     Route: 065
  2. METHOTREXATE [Concomitant]
     Active Substance: METHOTREXATE
     Indication: Blood test abnormal
     Dosage: UNK
  3. PREDNISONE [Concomitant]
     Active Substance: PREDNISONE
     Indication: Blood test abnormal
     Dosage: UNK
  4. REMICADE [Concomitant]
     Active Substance: INFLIXIMAB
     Indication: Blood test abnormal
     Dosage: UNK
  5. WEGOVY [Concomitant]
     Active Substance: SEMAGLUTIDE
     Indication: Mental disorder
     Dosage: UNK

REACTIONS (8)
  - Psoriatic arthropathy [Unknown]
  - Psoriasis [Unknown]
  - Illness [Unknown]
  - Weight decreased [Unknown]
  - Nausea [Unknown]
  - Abdominal discomfort [Recovered/Resolved]
  - Drug ineffective [Unknown]
  - Stress [Unknown]
